FAERS Safety Report 24671244 (Version 1)
Quarter: 2024Q4

REPORT INFORMATION
  Report Type: Spontaneous
  Country: RO (occurrence: RO)
  Receive Date: 20241127
  Receipt Date: 20241127
  Transmission Date: 20250115
  Serious: Yes (Other)
  Sender: EMD SERONO INC
  Company Number: RO-Merck Healthcare KGaA-2024062466

PATIENT
  Age: 32 Year
  Sex: Female

DRUGS (3)
  1. CLADRIBINE [Suspect]
     Active Substance: CLADRIBINE
     Indication: Relapsing-remitting multiple sclerosis
     Dosage: FIRST COURSE THERAPY
  2. CLADRIBINE [Suspect]
     Active Substance: CLADRIBINE
     Dosage: SECOND COURSE FIRST MONTH THERAPY
  3. CLADRIBINE [Suspect]
     Active Substance: CLADRIBINE
     Dosage: SECOND COURSE SECOND MONTH THERAPY

REACTIONS (2)
  - Multiple sclerosis relapse [Unknown]
  - Lymphocyte count decreased [Recovering/Resolving]

NARRATIVE: CASE EVENT DATE: 20230201
